FAERS Safety Report 6820524-7 (Version None)
Quarter: 2010Q3

REPORT INFORMATION
  Report Type: 
  Country: None (occurrence: None)
  Receive Date: 20100707
  Receipt Date: 20100623
  Transmission Date: 20110219
  Serious: Yes (Death, Hospitalization, Other)
  Sender: FDA-Public Use
  Company Number: PHEH2007US15185

PATIENT
  Sex: Male
  Weight: 78.005 kg

DRUGS (39)
  1. ZOMETA [Suspect]
     Indication: NEOPLASM MALIGNANT
     Dosage: Q 4 WEEKS
     Route: 042
     Dates: start: 20060209, end: 20070520
  2. ZOMETA [Suspect]
     Indication: LUNG CANCER METASTATIC
  3. LYRICA [Concomitant]
  4. GEMZAR [Concomitant]
     Dosage: UNK
     Dates: start: 20060101
  5. AVASTIN [Concomitant]
     Dosage: UNK
     Dates: start: 20060201, end: 20070907
  6. NEXIUM [Concomitant]
     Dosage: 40 MG, UNK
  7. PROCRIT                            /00909301/ [Concomitant]
     Dosage: 10 MU/ML, UNK
  8. ALBUTEROL [Concomitant]
  9. MORPHINE [Concomitant]
     Dosage: 4 MG, UNK
  10. AMBIEN [Concomitant]
     Dosage: 5 MG, UNK
  11. ASCORBIC ACID (VIT C), INCL COMBINATIONS [Concomitant]
     Dosage: 500 MG, UNK
  12. ROXICET [Concomitant]
  13. DOCUSATE SODIUM [Concomitant]
     Dosage: 100 MG, UNK
  14. RADIATION THERAPY [Concomitant]
     Dosage: UNK
     Dates: end: 20060801
  15. CHEMOTHERAPEUTICS NOS [Concomitant]
  16. FISH OIL [Concomitant]
  17. TYLENOL W/ CODEINE [Concomitant]
  18. ZOLOFT [Concomitant]
  19. TAXOL [Concomitant]
  20. GEMCITABINE HCL [Concomitant]
     Dosage: UNK
     Dates: end: 20070901
  21. VICODIN [Concomitant]
  22. INDOCIN [Concomitant]
     Dosage: 75 MG, DAILY
     Route: 048
  23. RITUXIMAB [Concomitant]
  24. NAVELBINE [Concomitant]
  25. OXYCODONE HCL [Concomitant]
     Dosage: UNK
  26. OXYCONTIN [Concomitant]
     Dosage: 10 MG, BID
  27. FLEXERIL [Concomitant]
     Dosage: 5 MG, TID PRN
  28. ALIMTA [Concomitant]
     Dosage: UNK
     Dates: start: 20071005, end: 20071201
  29. PENICILLIN ^GRUNENTHAL^ [Concomitant]
  30. TAXOTERE [Concomitant]
     Dosage: UNK
     Dates: start: 20071201, end: 20080104
  31. KEFLEX [Concomitant]
     Dosage: UNK
  32. DARVOCET-N 100 [Concomitant]
     Dosage: AS NEEDED
  33. REGLAN [Concomitant]
     Dosage: UNK
  34. ANCEF [Concomitant]
     Dosage: UNK
  35. NIPRIDE [Concomitant]
     Dosage: UNK
  36. PROCRIT                            /00909301/ [Concomitant]
     Dosage: UNK
  37. ZINC SULFATE [Concomitant]
     Dosage: 220 MG TABLETS, ONE DAILY
  38. XANAX [Concomitant]
     Dosage: .25 MG
  39. TORADOL [Concomitant]
     Dosage: 30 MG INJECTION, EVERY 6 HOURS

REACTIONS (43)
  - ANAEMIA [None]
  - ANHEDONIA [None]
  - ANXIETY [None]
  - ARTHRALGIA [None]
  - BACK PAIN [None]
  - BONE DISORDER [None]
  - BONE FRAGMENTATION [None]
  - BONE LESION [None]
  - BRAIN NEOPLASM MALIGNANT [None]
  - BRUXISM [None]
  - CATARACT OPERATION [None]
  - CHOLELITHIASIS [None]
  - CONSTIPATION [None]
  - DEBRIDEMENT [None]
  - DEFORMITY [None]
  - DENTAL OPERATION [None]
  - EMOTIONAL DISTRESS [None]
  - ERECTILE DYSFUNCTION [None]
  - EXOSTOSIS [None]
  - GLOSSITIS [None]
  - HYPOAESTHESIA [None]
  - HYPOPHAGIA [None]
  - INSOMNIA [None]
  - INTRAMEDULLARY ROD INSERTION [None]
  - LOOSE TOOTH [None]
  - LUNG NEOPLASM MALIGNANT [None]
  - MALIGNANT NEOPLASM OF SPINAL CORD [None]
  - MALIGNANT NEOPLASM PROGRESSION [None]
  - MALOCCLUSION [None]
  - MASTICATION DISORDER [None]
  - METASTASES TO LUNG [None]
  - MUSCULOSKELETAL DISCOMFORT [None]
  - NEUROPATHY PERIPHERAL [None]
  - OSTEOARTHRITIS [None]
  - OSTEONECROSIS OF JAW [None]
  - PAIN [None]
  - PAIN IN JAW [None]
  - PERIODONTAL DISEASE [None]
  - PRIMARY SEQUESTRUM [None]
  - PYREXIA [None]
  - TOOTH ABSCESS [None]
  - TOOTH DISORDER [None]
  - TOOTHACHE [None]
